FAERS Safety Report 9279312 (Version 2)
Quarter: 2013Q2

REPORT INFORMATION
  Report Type: Spontaneous
  Country: US (occurrence: US)
  Receive Date: 20130508
  Receipt Date: 20130524
  Transmission Date: 20140414
  Serious: No
  Sender: FDA-Public Use
  Company Number: US-BIOGENIDEC-2013BI039456

PATIENT
  Sex: Male
  Weight: 104 kg

DRUGS (12)
  1. AVONEX [Suspect]
     Indication: MULTIPLE SCLEROSIS
     Route: 030
     Dates: start: 20130321
  2. AVONEX [Suspect]
     Indication: MULTIPLE SCLEROSIS
     Route: 030
     Dates: start: 20130324
  3. AVONEX [Suspect]
     Indication: MULTIPLE SCLEROSIS
     Route: 030
     Dates: start: 20130419
  4. PROTONIX [Concomitant]
  5. INSULIN [Concomitant]
  6. EC ASPIRIN [Concomitant]
     Route: 048
  7. NORVASC [Concomitant]
     Route: 048
  8. NORVASC [Concomitant]
     Route: 048
  9. PRILOSEC [Concomitant]
     Route: 048
  10. PREDNISONE [Concomitant]
     Route: 048
  11. AVELOX [Concomitant]
  12. PRAVACHOL [Concomitant]
     Route: 048

REACTIONS (1)
  - No adverse event [Unknown]
